FAERS Safety Report 9748335 (Version 1)
Quarter: 2013Q4

REPORT INFORMATION
  Report Type: Spontaneous
  Country: SE (occurrence: SE)
  Receive Date: 20131212
  Receipt Date: 20131212
  Transmission Date: 20140711
  Serious: Yes (Life-Threatening)
  Sender: FDA-Public Use
  Company Number: PHHY2013SE144152

PATIENT
  Age: 55 Year
  Sex: Male
  Weight: 80 kg

DRUGS (1)
  1. SANDIMMUNE NEORAL [Suspect]
     Indication: TRANSPLANT
     Dosage: 50 MG, BID
     Dates: start: 2013

REACTIONS (4)
  - Palpitations [Recovered/Resolved]
  - Procedural complication [Recovered/Resolved]
  - Oedema [Recovered/Resolved]
  - Drug level decreased [Recovered/Resolved]
